FAERS Safety Report 7583362-6 (Version None)
Quarter: 2011Q2

REPORT INFORMATION
  Report Type: 
  Country: None (occurrence: None)
  Receive Date: 20110623
  Receipt Date: 20110617
  Transmission Date: 20111010
  Serious: Yes (Death)
  Sender: FDA-Public Use
  Company Number: DSA_45567_2011

PATIENT
  Sex: Female

DRUGS (8)
  1. ARICEPT [Concomitant]
  2. KLONOPIN [Concomitant]
  3. PAXIL [Concomitant]
  4. KADIAN [Concomitant]
  5. HALDOL [Concomitant]
  6. MIRALAX /00754501/ [Concomitant]
  7. PRILOSEC [Concomitant]
  8. XENAZINE [Suspect]
     Indication: HUNTINGTON'S DISEASE
     Dosage: (12.5 MG BID ORAL)
     Route: 048

REACTIONS (4)
  - DYSPHAGIA [None]
  - DEPRESSION [None]
  - DROOLING [None]
  - DYSARTHRIA [None]
